FAERS Safety Report 5601113-9 (Version None)
Quarter: 2008Q1

REPORT INFORMATION
  Report Type: 
  Country: None (occurrence: None)
  Receive Date: 20080118
  Receipt Date: 20080116
  Transmission Date: 20080703
  Serious: Yes (Death)
  Sender: FDA-Public Use
  Company Number: 2008SP001351

PATIENT
  Age: 60 Year
  Sex: Male

DRUGS (1)
  1. INTRON A [Suspect]
     Indication: ASTROCYTOMA MALIGNANT
     Dosage: 10 MIU, TIW, SC
     Route: 058

REACTIONS (1)
  - DEATH [None]
